FAERS Safety Report 5213416-0 (Version None)
Quarter: 2007Q1

REPORT INFORMATION
  Report Type: 
  Country: None (occurrence: None)
  Receive Date: 20070116
  Receipt Date: 20070111
  Transmission Date: 20070707
  Serious: Yes (Hospitalization, Other)
  Sender: FDA-Public Use
  Company Number: HQWYE652916DEC03

PATIENT
  Age: 68 Year
  Sex: Female

DRUGS (5)
  1. RAPAMUNE [Suspect]
     Indication: PROPHYLAXIS AGAINST TRANSPLANT REJECTION
     Dosage: 3 MG 1X PER 1 DAY
     Route: 048
     Dates: start: 20030802, end: 20031021
  2. PREDNISONE TAB [Concomitant]
  3. CELLCEPT [Concomitant]
  4. ARANESP [Concomitant]
  5. FUROSEMIDE [Concomitant]

REACTIONS (6)
  - CARDIAC FAILURE ACUTE [None]
  - PETECHIAE [None]
  - PNEUMONIA [None]
  - PURPURA [None]
  - RESPIRATORY FAILURE [None]
  - STAPHYLOCOCCAL INFECTION [None]
